FAERS Safety Report 25666237 (Version 1)
Quarter: 2025Q3

REPORT INFORMATION
  Report Type: Spontaneous
  Country: US (occurrence: None)
  Receive Date: 20250811
  Receipt Date: 20250811
  Transmission Date: 20251021
  Serious: No
  Sender: FDA-CTU
  Company Number: None

PATIENT

DRUGS (1)
  1. MAVENCLAD [Suspect]
     Active Substance: CLADRIBINE

REACTIONS (9)
  - Formication [None]
  - Multiple sclerosis relapse [None]
  - Hypoaesthesia [None]
  - Weight increased [None]
  - Hypoaesthesia [None]
  - Hypoaesthesia [None]
  - Fatigue [None]
  - Colitis [None]
  - Paraesthesia [None]
